FAERS Safety Report 18167875 (Version 3)
Quarter: 2020Q3

REPORT INFORMATION
  Report Type: Report from Study
  Country: US (occurrence: US)
  Receive Date: 20200819
  Receipt Date: 20200826
  Transmission Date: 20201103
  Serious: Yes (Hospitalization, Other)
  Sender: FDA-Public Use
  Company Number: NVSC2020US228941

PATIENT
  Sex: Female

DRUGS (1)
  1. ENTRESTO [Suspect]
     Active Substance: SACUBITRIL\VALSARTAN
     Indication: CARDIAC FAILURE
     Dosage: UNK UNK, BID
     Route: 048
     Dates: start: 201911

REACTIONS (5)
  - COVID-19 [Unknown]
  - Anosmia [Unknown]
  - Fatigue [Unknown]
  - Ageusia [Unknown]
  - Hypotension [Unknown]

NARRATIVE: CASE EVENT DATE: 2020
